FAERS Safety Report 23763104 (Version 1)
Quarter: 2024Q2

REPORT INFORMATION
  Report Type: Spontaneous
  Country: CN (occurrence: CN)
  Receive Date: 20240419
  Receipt Date: 20240419
  Transmission Date: 20240716
  Serious: Yes (Other)
  Sender: FDA-Public Use
  Company Number: CN-GILEAD-2024-0669393

PATIENT
  Age: 61 Year
  Sex: Male

DRUGS (2)
  1. VIREAD [Suspect]
     Active Substance: TENOFOVIR DISOPROXIL FUMARATE
     Indication: Hepatitis B
     Dosage: 300 MG, QD
     Route: 065
     Dates: start: 202303
  2. DICLOFENAC [Suspect]
     Active Substance: DICLOFENAC
     Indication: Arthralgia
     Dosage: 75 MG, QD (3 DAYS A WEEK)
     Route: 065

REACTIONS (2)
  - Renal injury [Unknown]
  - Drug interaction [Unknown]
